FAERS Safety Report 19056203 (Version 2)
Quarter: 2021Q1

REPORT INFORMATION
  Report Type: Spontaneous
  Country: IN (occurrence: IN)
  Receive Date: 20210325
  Receipt Date: 20210326
  Transmission Date: 20210420
  Serious: Yes (Hospitalization, Other)
  Sender: FDA-Public Use
  Company Number: IN-VISTAPHARM, INC.-VER202103-000975

PATIENT
  Age: 23 Year
  Sex: Male

DRUGS (3)
  1. PHENYTOIN. [Suspect]
     Active Substance: PHENYTOIN
     Indication: SEIZURE
     Dosage: 30 TABLETS OF 100 MG
     Route: 048
  2. METHYLPREDNISOLONE. [Concomitant]
     Active Substance: METHYLPREDNISOLONE
     Indication: ENCEPHALITIS AUTOIMMUNE
     Dosage: 1 GM /DAY FOR 5 DAYS
  3. PHENOBARBITONE [Concomitant]
     Active Substance: PHENOBARBITAL
     Indication: SEIZURE
     Dosage: UNKNOWN

REACTIONS (5)
  - Dyskinesia [Recovered/Resolved]
  - Suicide attempt [Unknown]
  - Seizure [Unknown]
  - Coma [Recovered/Resolved]
  - Intentional overdose [Unknown]
